FAERS Safety Report 10022999 (Version 1)
Quarter: 2014Q1

REPORT INFORMATION
  Report Type: Spontaneous
  Country: US (occurrence: US)
  Receive Date: 20140319
  Receipt Date: 20140319
  Transmission Date: 20141002
  Serious: No
  Sender: FDA-Public Use
  Company Number: -SAAVPROD-LEUK-1000345

PATIENT
  Age: 37 Year
  Sex: Male

DRUGS (1)
  1. SARGRAMOSTIM [Suspect]
     Indication: MELANOMA RECURRENT
     Dosage: 250 MCG, QD
     Route: 065
     Dates: start: 20130324, end: 20130401

REACTIONS (2)
  - Seroma [Not Recovered/Not Resolved]
  - Graft complication [Not Recovered/Not Resolved]
